FAERS Safety Report 7004031-7 (Version None)
Quarter: 2010Q3

REPORT INFORMATION
  Report Type: 
  Country: None (occurrence: None)
  Receive Date: 20100920
  Receipt Date: 20100115
  Transmission Date: 20110219
  Serious: No
  Sender: FDA-Public Use
  Company Number: US-WYE-H13075010

PATIENT
  Sex: Male
  Weight: 99.88 kg

DRUGS (2)
  1. PRISTIQ [Suspect]
     Indication: DEPRESSION
     Route: 048
     Dates: start: 20100113
  2. XANAX [Concomitant]

REACTIONS (3)
  - APATHY [None]
  - ASTHENIA [None]
  - FATIGUE [None]
